FAERS Safety Report 4953299-7 (Version None)
Quarter: 2006Q1

REPORT INFORMATION
  Report Type: 
  Country: None (occurrence: None)
  Receive Date: 20060324
  Receipt Date: 20060313
  Transmission Date: 20060701
  Serious: Yes (Other)
  Sender: FDA-Public Use
  Company Number: GB-JNJFOC-20060300532

PATIENT
  Age: 39 Year
  Sex: Male

DRUGS (7)
  1. RISPERDAL CONSTA [Suspect]
     Indication: SCHIZOPHRENIA
     Dosage: STOPPED IN DEC
     Route: 030
  2. HALOPERIDOL [Concomitant]
     Indication: SCHIZOPHRENIA
  3. METFORMIN [Concomitant]
  4. LONG ACTING INSULIN [Concomitant]
  5. SHORT ACTING INSULIN [Concomitant]
  6. OMEPRAZOLE [Concomitant]
  7. CLOZAPINE [Concomitant]
     Indication: SCHIZOPHRENIA

REACTIONS (4)
  - ANAEMIA [None]
  - HAEMATURIA [None]
  - LOWER RESPIRATORY TRACT INFECTION [None]
  - WEIGHT DECREASED [None]
